FAERS Safety Report 19416431 (Version 1)
Quarter: 2021Q2

REPORT INFORMATION
  Report Type: Spontaneous
  Country: US (occurrence: US)
  Receive Date: 20210614
  Receipt Date: 20210614
  Transmission Date: 20210717
  Serious: No
  Sender: FDA-Public Use
  Company Number: US-TAKEDA-2021TUS035744

PATIENT

DRUGS (3)
  1. MOTEGRITY [Suspect]
     Active Substance: PRUCALOPRIDE SUCCINATE
     Indication: PRODUCT USED FOR UNKNOWN INDICATION
     Dosage: UNK
     Route: 065
  2. LINZESS [Concomitant]
     Active Substance: LINACLOTIDE
  3. AMITIZA [Concomitant]
     Active Substance: LUBIPROSTONE

REACTIONS (2)
  - No adverse event [Unknown]
  - Inability to afford medication [Unknown]
